FAERS Safety Report 15937429 (Version 1)
Quarter: 2019Q1

REPORT INFORMATION
  Report Type: Other
  Country: NL (occurrence: NL)
  Receive Date: 20190208
  Receipt Date: 20190208
  Transmission Date: 20190417
  Serious: Yes (Hospitalization)
  Sender: FDA-Public Use
  Company Number: NL-APOTEX-2019AP007288

PATIENT
  Age: 70 Year
  Sex: Female

DRUGS (19)
  1. HALOPERIDOL. [Interacting]
     Active Substance: HALOPERIDOL
     Indication: ANXIETY
     Dosage: 3.5 MG, QD
     Route: 048
  2. CLOMIPRAMINE [Interacting]
     Active Substance: CLOMIPRAMINE
     Indication: DEPRESSION
     Dosage: 100 MG, QD
     Route: 065
  3. LISINOPRIL. [Concomitant]
     Active Substance: LISINOPRIL
     Indication: PRODUCT USED FOR UNKNOWN INDICATION
     Dosage: UNK
     Route: 065
  4. FLUVOXAMINE [Interacting]
     Active Substance: FLUVOXAMINE
     Indication: DEPRESSION
  5. ZOLPIDEM [Concomitant]
     Active Substance: ZOLPIDEM\ZOLPIDEM TARTRATE
     Indication: PRODUCT USED FOR UNKNOWN INDICATION
     Dosage: UNK
     Route: 065
  6. CLOMIPRAMINE [Interacting]
     Active Substance: CLOMIPRAMINE
     Indication: ANXIETY
     Dosage: 50 MG, QD (50 MILLIGRAM DAILY; LATER INCREASED TO 100 MG/DAY)
     Route: 065
  7. AMLODIPINE [Concomitant]
     Active Substance: AMLODIPINE BESYLATE
     Indication: PRODUCT USED FOR UNKNOWN INDICATION
     Dosage: UNK
     Route: 065
  8. FLUVOXAMINE [Interacting]
     Active Substance: FLUVOXAMINE
     Indication: ANXIETY
     Dosage: 100 MG, QD (100 MILLIGRAM DAILY)
     Route: 065
  9. HALOPERIDOL. [Interacting]
     Active Substance: HALOPERIDOL
     Indication: DEPRESSION
     Dosage: 3 MG, QD, 3 MILLIGRAM DAILY; LATER, INCREASED TO 3.5 MG/DAY
     Route: 048
  10. OMEPRAZOLE. [Concomitant]
     Active Substance: OMEPRAZOLE
     Indication: PRODUCT USED FOR UNKNOWN INDICATION
     Dosage: UNK
     Route: 065
  11. PRAVASTATIN. [Concomitant]
     Active Substance: PRAVASTATIN
     Indication: PRODUCT USED FOR UNKNOWN INDICATION
     Dosage: UNK
     Route: 065
  12. ACETYLSALICYLIC ACID [Concomitant]
     Active Substance: ASPIRIN
     Indication: PRODUCT USED FOR UNKNOWN INDICATION
     Dosage: UNK
     Route: 065
  13. HYDROCHLOROTHIAZIDE. [Concomitant]
     Active Substance: HYDROCHLOROTHIAZIDE
     Indication: PRODUCT USED FOR UNKNOWN INDICATION
     Dosage: UNK
     Route: 065
  14. HALOPERIDOL. [Interacting]
     Active Substance: HALOPERIDOL
     Indication: POSTOPERATIVE DELIRIUM
     Dosage: UNK
     Route: 065
  15. METOPROLOL. [Concomitant]
     Active Substance: METOPROLOL
     Indication: PRODUCT USED FOR UNKNOWN INDICATION
     Dosage: UNK
     Route: 065
  16. FLUVOXAMINE [Suspect]
     Active Substance: FLUVOXAMINE
     Indication: OBSESSIVE-COMPULSIVE DISORDER
     Dosage: UNK
     Route: 065
  17. CLOMIPRAMINE [Interacting]
     Active Substance: CLOMIPRAMINE
     Indication: OBSESSIVE-COMPULSIVE DISORDER
     Dosage: UNK
     Route: 065
  18. MELATONIN [Concomitant]
     Active Substance: MELATONIN
     Indication: PRODUCT USED FOR UNKNOWN INDICATION
     Dosage: UNK
     Route: 065
  19. HALOPERIDOL. [Interacting]
     Active Substance: HALOPERIDOL
     Indication: OBSESSIVE-COMPULSIVE DISORDER

REACTIONS (5)
  - Agitation [Recovering/Resolving]
  - Drug level increased [Recovered/Resolved]
  - Confusional state [Recovering/Resolving]
  - Drug interaction [Recovered/Resolved]
  - Toxicity to various agents [Recovering/Resolving]
